FAERS Safety Report 15247820 (Version 2)
Quarter: 2018Q3

REPORT INFORMATION
  Report Type: Report from Study
  Country: MX (occurrence: MX)
  Receive Date: 20180807
  Receipt Date: 20180821
  Transmission Date: 20181010
  Serious: Yes (Death)
  Sender: FDA-Public Use
  Company Number: MX-INCYTE CORPORATION-2018IN007817

PATIENT

DRUGS (1)
  1. JAKAVI [Suspect]
     Active Substance: RUXOLITINIB
     Indication: MYELOFIBROSIS
     Dosage: 20 MG, UNK
     Route: 065

REACTIONS (3)
  - Infarction [Fatal]
  - Leukaemia [Fatal]
  - Disease progression [Fatal]
